FAERS Safety Report 20415593 (Version 1)
Quarter: 2022Q1

REPORT INFORMATION
  Report Type: Other
  Country: US (occurrence: None)
  Receive Date: 20220202
  Receipt Date: 20220202
  Transmission Date: 20220423
  Serious: No
  Sender: FDA-Public Use
  Company Number: US-ROCHE-3011758

PATIENT
  Age: 44 Year
  Sex: Male

DRUGS (4)
  1. OCREVUS [Suspect]
     Active Substance: OCRELIZUMAB
     Indication: Multiple sclerosis
     Route: 042
  2. COVID-19 VACCINE [Concomitant]
     Dates: start: 20210709
  3. COVID-19 VACCINE [Concomitant]
     Dates: start: 20210428
  4. COVID-19 VACCINE [Concomitant]
     Dates: start: 20210407

REACTIONS (1)
  - COVID-19 [Recovered/Resolved]

NARRATIVE: CASE EVENT DATE: 20211209
